APPROVED DRUG PRODUCT: XANAX XR
Active Ingredient: ALPRAZOLAM
Strength: 0.5MG
Dosage Form/Route: TABLET, EXTENDED RELEASE;ORAL
Application: N021434 | Product #001 | TE Code: AB
Applicant: UPJOHN US 2 LLC
Approved: Jan 17, 2003 | RLD: Yes | RS: No | Type: RX